FAERS Safety Report 10008823 (Version 2)
Quarter: 2014Q1

REPORT INFORMATION
  Report Type: Spontaneous
  Country: US (occurrence: US)
  Receive Date: 20140312
  Receipt Date: 20140312
  Transmission Date: 20141002
  Serious: No
  Sender: FDA-Public Use
  Company Number: US-INCYTE CORPORATION-2012IN000280

PATIENT
  Age: 74 Year
  Sex: Male

DRUGS (9)
  1. JAKAFI [Suspect]
     Indication: MYELOFIBROSIS
     Dosage: 20 MG, BID
     Route: 048
     Dates: start: 201202
  2. HYDREA [Concomitant]
     Dosage: 500 MG, QD
  3. PAXIL [Concomitant]
  4. PRILOSEC [Concomitant]
  5. PREDNISONE [Concomitant]
     Dosage: 10 MG, QOD
  6. PREDNISONE [Concomitant]
     Dosage: 5 MG, QOD
  7. VITAMIN D [Concomitant]
     Indication: SUPPLEMENTATION THERAPY
  8. CALCIUM [Concomitant]
     Indication: SUPPLEMENTATION THERAPY
  9. HYDROXYUREA [Suspect]

REACTIONS (3)
  - Joint swelling [Unknown]
  - Contusion [Unknown]
  - Anaemia [Unknown]
